FAERS Safety Report 7956155-5 (Version None)
Quarter: 2011Q4

REPORT INFORMATION
  Report Type: 
  Country: None (occurrence: None)
  Receive Date: 20111205
  Receipt Date: 20111101
  Transmission Date: 20120403
  Serious: No
  Sender: FDA-Public Use
  Company Number: JP-ELI_LILLY_AND_COMPANY-JP201110004191

PATIENT
  Age: 87 Year
  Sex: Female

DRUGS (3)
  1. ZYPREXA [Suspect]
     Dosage: 5 MG, QD
     Route: 048
     Dates: start: 20111006
  2. ZYPREXA [Suspect]
     Dosage: 10 MG, QD
     Route: 048
     Dates: start: 20110815, end: 20111005
  3. DEPAKENE [Concomitant]
     Indication: DEMENTIA
     Dosage: UNK
     Dates: start: 20110830, end: 20110921

REACTIONS (1)
  - PANCYTOPENIA [None]
